FAERS Safety Report 4824203-7 (Version None)
Quarter: 2005Q4

REPORT INFORMATION
  Report Type: 
  Country: None (occurrence: None)
  Receive Date: 20051108
  Receipt Date: 20051027
  Transmission Date: 20060501
  Serious: Yes (Other)
  Sender: FDA-Public Use
  Company Number: USA0506100445

PATIENT
  Age: 76 Year
  Sex: Female

DRUGS (1)
  1. FORTEO [Suspect]
     Dates: start: 20050101

REACTIONS (5)
  - CHOROIDAL NEOVASCULARISATION [None]
  - INJECTION SITE IRRITATION [None]
  - INJECTION SITE PAIN [None]
  - MACULAR DEGENERATION [None]
  - PHARMACEUTICAL PRODUCT COMPLAINT [None]
